FAERS Safety Report 15197730 (Version 1)
Quarter: 2018Q3

REPORT INFORMATION
  Report Type: Spontaneous
  Country: US (occurrence: US)
  Receive Date: 20180725
  Receipt Date: 20180725
  Transmission Date: 20181010
  Serious: No
  Sender: FDA-Public Use
  Company Number: US-ABBVIE-18P-163-2209120-00

PATIENT
  Age: 77 Year
  Sex: Female

DRUGS (3)
  1. SYNTHROID [Suspect]
     Active Substance: LEVOTHYROXINE SODIUM
     Route: 048
  2. SYNTHROID [Suspect]
     Active Substance: LEVOTHYROXINE SODIUM
     Indication: THYROID HORMONES DECREASED
     Route: 048
     Dates: start: 1975
  3. GENOTROPIN [Concomitant]
     Active Substance: SOMATROPIN
     Indication: LYMPHADENOPATHY
     Route: 050
     Dates: start: 1997

REACTIONS (1)
  - Overdose [Not Recovered/Not Resolved]

NARRATIVE: CASE EVENT DATE: 201711
